FAERS Safety Report 5200398-0 (Version None)
Quarter: 2006Q4

REPORT INFORMATION
  Report Type: 
  Country: None (occurrence: None)
  Receive Date: 20061016
  Receipt Date: 20060720
  Transmission Date: 20070319
  Serious: No
  Sender: FDA-Public Use
  Company Number: 2006SP002767

PATIENT
  Age: 52 Year
  Sex: Female
  Weight: 73.9363 kg

DRUGS (2)
  1. LUNESTA [Suspect]
     Indication: INSOMNIA
     Dosage: 3 MG; HS; ORAL
     Route: 048
     Dates: start: 20060623, end: 20060707
  2. LUNESTA [Suspect]
     Indication: MIGRAINE PROPHYLAXIS
     Dosage: 3 MG; HS; ORAL
     Route: 048
     Dates: start: 20060623, end: 20060707

REACTIONS (2)
  - ANOREXIA [None]
  - DYSGEUSIA [None]
